FAERS Safety Report 7472905-9 (Version None)
Quarter: 2011Q2

REPORT INFORMATION
  Report Type: 
  Country: None (occurrence: None)
  Receive Date: 20110503
  Receipt Date: 20110411
  Transmission Date: 20111010
  Serious: Yes (Life-Threatening)
  Sender: FDA-Public Use
  Company Number: INT_00023_2011

PATIENT
  Sex: Female
  Weight: 61.2356 kg

DRUGS (2)
  1. CEFTRIAXONE [Suspect]
     Indication: SINUSITIS
     Dosage: (INTRAMUSCULAR)
     Route: 030
     Dates: start: 20101213
  2. CEFTRIAXONE [Suspect]
     Indication: CHRONIC OBSTRUCTIVE PULMONARY DISEASE
     Dosage: (INTRAMUSCULAR)
     Route: 030
     Dates: start: 20101213

REACTIONS (2)
  - BLOOD PRESSURE DECREASED [None]
  - ANGIOEDEMA [None]
